FAERS Safety Report 16811768 (Version 1)
Quarter: 2019Q3

REPORT INFORMATION
  Report Type: Spontaneous
  Country: FR (occurrence: FR)
  Receive Date: 20190916
  Receipt Date: 20190916
  Transmission Date: 20191005
  Serious: Yes (Other)
  Sender: FDA-Public Use
  Company Number: FR-MYLANLABS-2019M1085717

PATIENT
  Age: 87 Year
  Sex: Female

DRUGS (4)
  1. PANTOPRAZOLE [Suspect]
     Active Substance: PANTOPRAZOLE
     Indication: GASTROOESOPHAGEAL REFLUX DISEASE
     Dosage: UNK
     Route: 048
     Dates: start: 20160727, end: 20160801
  2. CORDARONE [Suspect]
     Active Substance: AMIODARONE HYDROCHLORIDE
     Indication: TACHYCARDIA
     Dosage: 200 MILLIGRAM
     Route: 048
     Dates: start: 20160717, end: 20160731
  3. OMNIPAQUE [Suspect]
     Active Substance: IOHEXOL
     Indication: COMPUTERISED TOMOGRAM
     Dosage: 350 MILLIGRAM
     Route: 042
     Dates: start: 20160729, end: 20160729
  4. HEMIGOXINE NATIVELLE [Suspect]
     Active Substance: DIGOXIN
     Indication: TACHYCARDIA
     Dosage: 0.13 MILLIGRAM
     Route: 048
     Dates: start: 20160716, end: 20160727

REACTIONS (1)
  - Drug reaction with eosinophilia and systemic symptoms [Recovered/Resolved]

NARRATIVE: CASE EVENT DATE: 20160729
